FAERS Safety Report 5265138-8 (Version None)
Quarter: 2007Q1

REPORT INFORMATION
  Report Type: 
  Country: None (occurrence: None)
  Receive Date: 20061121
  Receipt Date: 20060810
  Transmission Date: 20070707
  Serious: No
  Sender: FDA-Public Use
  Company Number: TPA2006A01318

PATIENT
  Age: 83 Year
  Sex: Female
  Weight: 55.3388 kg

DRUGS (4)
  1. ROZEREM [Suspect]
     Indication: INSOMNIA
     Dosage: 8 MG, HS, PER ORAL
     Route: 048
     Dates: start: 20060524, end: 20060809
  2. CELEBREX (CELECOXIB) (200 MILLIGRAM) [Concomitant]
  3. PLAVIX [Concomitant]
  4. LEVOTHYROXINE SODIUM [Concomitant]

REACTIONS (1)
  - HALLUCINATION [None]
